FAERS Safety Report 4692601-0 (Version None)
Quarter: 2005Q2

REPORT INFORMATION
  Report Type: 
  Country: None (occurrence: None)
  Receive Date: 20050617
  Receipt Date: 20050309
  Transmission Date: 20051028
  Serious: Yes (Hospitalization)
  Sender: FDA-Public Use
  Company Number: US-MERCK-0503USA01783

PATIENT
  Age: 54 Year
  Sex: Male
  Weight: 114 kg

DRUGS (3)
  1. VIOXX [Suspect]
     Indication: GOUTY ARTHRITIS
     Route: 048
     Dates: start: 20010101, end: 20040501
  2. IBUPROFEN [Concomitant]
     Route: 065
  3. ASPIRIN [Concomitant]
     Route: 048

REACTIONS (8)
  - ANGINA PECTORIS [None]
  - ANXIETY [None]
  - BLOOD CHOLESTEROL INCREASED [None]
  - CORONARY ARTERY DISEASE [None]
  - ISCHAEMIC CARDIOMYOPATHY [None]
  - MYOCARDIAL INFARCTION [None]
  - OVERDOSE [None]
  - PALPITATIONS [None]
